FAERS Safety Report 17124453 (Version 1)
Quarter: 2019Q4

REPORT INFORMATION
  Report Type: Spontaneous
  Country: US (occurrence: US)
  Receive Date: 20191206
  Receipt Date: 20191206
  Transmission Date: 20200122
  Serious: Yes (Other)
  Sender: FDA-Public Use
  Company Number: US-NOVOPROD-686541

PATIENT
  Age: 70 Year
  Sex: Female

DRUGS (2)
  1. NOVOLIN 70/30 [Suspect]
     Active Substance: INSULIN HUMAN
     Dosage: EXTRA DOSE ADMINISTERD (CORRECTION DOSE)
     Route: 058
     Dates: start: 2017
  2. NOVOLIN 70/30 [Suspect]
     Active Substance: INSULIN HUMAN
     Indication: DIABETES MELLITUS
     Dosage: 25-30 UNITS
     Route: 058
     Dates: start: 2017

REACTIONS (4)
  - Liquid product physical issue [Unknown]
  - Visual impairment [Recovered/Resolved]
  - Product quality issue [Unknown]
  - Blood glucose increased [Recovered/Resolved]

NARRATIVE: CASE EVENT DATE: 20190913
